FAERS Safety Report 15982124 (Version 3)
Quarter: 2021Q1

REPORT INFORMATION
  Report Type: Spontaneous
  Country: US (occurrence: US)
  Receive Date: 20190219
  Receipt Date: 20210105
  Transmission Date: 20210419
  Serious: Yes (Hospitalization, Other)
  Sender: FDA-Public Use
  Company Number: US-PFIZER INC-2017213395

PATIENT
  Age: 64 Year
  Sex: Female

DRUGS (7)
  1. XELJANZ [Suspect]
     Active Substance: TOFACITINIB CITRATE
     Indication: OSTEOARTHRITIS
     Dosage: 5 MG, 2X/DAY
     Route: 048
  2. HYDROXYCHLOROQUINE [Concomitant]
     Active Substance: HYDROXYCHLOROQUINE
     Dosage: UNK
     Dates: start: 2012
  3. METHOTREXATE. [Concomitant]
     Active Substance: METHOTREXATE
     Dosage: UNK
     Dates: start: 2016
  4. XELJANZ [Suspect]
     Active Substance: TOFACITINIB CITRATE
     Indication: RHEUMATOID ARTHRITIS
     Dosage: 5 MG, 2X/DAY
     Route: 048
     Dates: start: 2012
  5. FOLIC ACID. [Concomitant]
     Active Substance: FOLIC ACID
     Dosage: UNK
     Dates: start: 2017
  6. XELJANZ [Suspect]
     Active Substance: TOFACITINIB CITRATE
     Dosage: 5 MG, 1X/DAY
     Route: 048
  7. FUROSEMIDE. [Concomitant]
     Active Substance: FUROSEMIDE
     Dosage: UNK
     Dates: start: 2012

REACTIONS (20)
  - Arthralgia [Not Recovered/Not Resolved]
  - Synovitis [Recovered/Resolved]
  - Dysstasia [Unknown]
  - Influenza like illness [Unknown]
  - Limb discomfort [Not Recovered/Not Resolved]
  - Pain [Not Recovered/Not Resolved]
  - Arthropathy [Recovered/Resolved]
  - Pruritus [Unknown]
  - Dizziness [Unknown]
  - Synovial cyst [Unknown]
  - Gait disturbance [Unknown]
  - Peripheral swelling [Not Recovered/Not Resolved]
  - Joint instability [Not Recovered/Not Resolved]
  - Nasopharyngitis [Unknown]
  - Weight decreased [Unknown]
  - Dry skin [Unknown]
  - Joint swelling [Unknown]
  - Liver function test increased [Unknown]
  - Intentional product misuse [Unknown]
  - Musculoskeletal stiffness [Not Recovered/Not Resolved]
